FAERS Safety Report 9485896 (Version 2)
Quarter: 2013Q4

REPORT INFORMATION
  Report Type: Spontaneous
  Country: JP (occurrence: JP)
  Receive Date: 20130829
  Receipt Date: 20131003
  Transmission Date: 20140711
  Serious: Yes (Hospitalization, Disabling)
  Sender: FDA-Public Use
  Company Number: JP-JNJFOC-20130814220

PATIENT
  Age: 71 Year
  Sex: Female
  Weight: 42 kg

DRUGS (10)
  1. XARELTO [Suspect]
     Indication: CEREBROVASCULAR ACCIDENT PROPHYLAXIS
     Route: 048
     Dates: start: 2013
  2. XARELTO [Suspect]
     Indication: CEREBROVASCULAR ACCIDENT PROPHYLAXIS
     Route: 048
     Dates: start: 20130722, end: 20130819
  3. XARELTO [Suspect]
     Indication: ATRIAL FIBRILLATION
     Route: 048
     Dates: start: 20130722, end: 20130819
  4. XARELTO [Suspect]
     Indication: ATRIAL FIBRILLATION
     Route: 048
     Dates: start: 2013
  5. SODIUM CHLORIDE [Concomitant]
     Indication: HYPONATRAEMIA
     Route: 065
     Dates: start: 20130807, end: 20130819
  6. TAKEPRON [Concomitant]
     Indication: GASTROOESOPHAGEAL REFLUX DISEASE
     Route: 065
     Dates: start: 20130722
  7. GRAMALIL [Concomitant]
     Indication: DELIRIUM
     Route: 065
     Dates: start: 20130722
  8. LASIX [Concomitant]
     Indication: OLIGURIA
     Route: 065
     Dates: start: 20130723
  9. VASOLAN [Concomitant]
     Indication: TACHYCARDIA
     Route: 065
     Dates: start: 20130722, end: 20130819
  10. TETRAMIDE [Concomitant]
     Indication: DEPRESSION
     Route: 065
     Dates: start: 20130807, end: 20130819

REACTIONS (2)
  - Cerebral infarction [Recovered/Resolved with Sequelae]
  - Drug ineffective [Unknown]
